FAERS Safety Report 12825279 (Version 1)
Quarter: 2016Q4

REPORT INFORMATION
  Report Type: Report from Study
  Country: KR (occurrence: KR)
  Receive Date: 20161007
  Receipt Date: 20161007
  Transmission Date: 20170207
  Serious: Yes (Hospitalization)
  Sender: FDA-Public Use
  Company Number: KR-B.I. PHARMACEUTICALS,INC./RIDGEFIELD-2016-BI-61284RK

PATIENT
  Age: 80 Year
  Sex: Male

DRUGS (12)
  1. FEROBA-U [Concomitant]
     Indication: ANAEMIA PROPHYLAXIS
     Dosage: SR
     Route: 065
     Dates: start: 20160403
  2. GODEX [Concomitant]
     Indication: PROPHYLAXIS
     Route: 065
     Dates: start: 20160912
  3. SKAD [Concomitant]
     Active Substance: AMLODIPINE MALEATE
     Indication: HYPERTENSION
     Route: 065
     Dates: start: 20160629
  4. PRADAXA [Concomitant]
     Active Substance: DABIGATRAN ETEXILATE MESYLATE
     Indication: PULMONARY EMBOLISM
     Route: 065
     Dates: start: 20160711
  5. PARAMACET [Concomitant]
     Active Substance: ACETAMINOPHEN\TRAMADOL
     Indication: NON-SMALL CELL LUNG CANCER
     Dosage: ACETAMINOPHEN 325 MG, TRAMADOL HYDROCHLORIDE 37.5 MG
     Route: 065
     Dates: start: 20160729
  6. GILOTRIF [Suspect]
     Active Substance: AFATINIB
     Indication: NON-SMALL CELL LUNG CANCER
     Route: 048
     Dates: start: 20160409
  7. MUCOSTA [Concomitant]
     Active Substance: REBAMIPIDE
     Indication: PROPHYLAXIS
     Route: 065
     Dates: start: 20160331
  8. ASIMA [Concomitant]
     Indication: CHRONIC OBSTRUCTIVE PULMONARY DISEASE
     Route: 065
     Dates: start: 20160331
  9. ANORO ELLIPTA [Concomitant]
     Active Substance: UMECLIDINIUM BROMIDE\VILANTEROL TRIFENATATE
     Indication: CHRONIC OBSTRUCTIVE PULMONARY DISEASE
     Route: 065
     Dates: start: 20160331
  10. APETROL ES [Concomitant]
     Indication: PROPHYLAXIS
     Dosage: DOSE: 650 MG/5.2 ML; DAILY DOSE: 1 PACKAGE (PKG)
     Route: 065
     Dates: start: 20160403
  11. SAMSCA [Concomitant]
     Active Substance: TOLVAPTAN
     Indication: HYPONATRAEMIA
     Dosage: FORMULATION: SPRAY DRY POWDER
     Route: 065
     Dates: start: 20160710
  12. COMBICIN [Concomitant]
     Indication: NON-SMALL CELL LUNG CANCER
     Route: 065
     Dates: start: 20160909

REACTIONS (1)
  - Joint abscess [Recovered/Resolved]

NARRATIVE: CASE EVENT DATE: 20160909
